FAERS Safety Report 12693636 (Version 1)
Quarter: 2016Q3

REPORT INFORMATION
  Report Type: Spontaneous
  Country: US (occurrence: US)
  Receive Date: 20160829
  Receipt Date: 20160829
  Transmission Date: 20161109
  Serious: No
  Sender: FDA-Public Use
  Company Number: US-BAYER-2016-160750

PATIENT
  Sex: Male

DRUGS (4)
  1. ADVIL [Suspect]
     Active Substance: IBUPROFEN
  2. TYLENOL [Suspect]
     Active Substance: ACETAMINOPHEN
  3. ALEVE [Suspect]
     Active Substance: NAPROXEN SODIUM
     Indication: PAIN IN EXTREMITY
  4. BAYER GENUINE ASPIRIN [Suspect]
     Active Substance: ASPIRIN

REACTIONS (3)
  - Product use issue [None]
  - Drug ineffective [None]
  - Intentional product use issue [None]
